FAERS Safety Report 23800514 (Version 1)
Quarter: 2024Q2

REPORT INFORMATION
  Report Type: Spontaneous
  Country: US (occurrence: US)
  Receive Date: 20240430
  Receipt Date: 20240430
  Transmission Date: 20240715
  Serious: Yes (Other)
  Sender: FDA-Public Use
  Company Number: US-BAYER-2024A058007

PATIENT
  Age: 68 Year
  Sex: Male

DRUGS (2)
  1. NUBEQA [Suspect]
     Active Substance: DAROLUTAMIDE
     Indication: Prostate cancer
     Dosage: UNK
     Dates: end: 20240409
  2. ORGOVYX [Concomitant]
     Active Substance: RELUGOLIX
     Dosage: UNK

REACTIONS (3)
  - Prostate cancer [None]
  - Hepatic mass [None]
  - Drug ineffective [None]

NARRATIVE: CASE EVENT DATE: 20240401
